FAERS Safety Report 10233688 (Version 1)
Quarter: 2014Q2

REPORT INFORMATION
  Report Type: Spontaneous
  Country: US (occurrence: US)
  Receive Date: 20140612
  Receipt Date: 20140612
  Transmission Date: 20141212
  Serious: Yes (Hospitalization, Other)
  Sender: FDA-Public Use
  Company Number: US-PFIZER INC-2014159432

PATIENT
  Age: 52 Year
  Sex: Female
  Weight: 51.25 kg

DRUGS (1)
  1. VFEND [Suspect]
     Indication: ASPERGILLOMA
     Dosage: 200 MG, 2X/DAY

REACTIONS (2)
  - Sarcoidosis [Unknown]
  - Drug ineffective [Unknown]
